FAERS Safety Report 10579947 (Version 1)
Quarter: 2014Q4

REPORT INFORMATION
  Report Type: Spontaneous
  Country: US (occurrence: US)
  Receive Date: 20141112
  Receipt Date: 20141112
  Transmission Date: 20150529
  Serious: No
  Sender: FDA-Public Use
  Company Number: US-ELI_LILLY_AND_COMPANY-US201411003037

PATIENT
  Sex: Male

DRUGS (8)
  1. INSULIN HUMAN [Suspect]
     Active Substance: INSULIN HUMAN
     Indication: DIABETES MELLITUS
     Dosage: UNK
     Route: 065
     Dates: start: 2014
  2. HUMULIN N [Suspect]
     Active Substance: INSULIN HUMAN
     Indication: DIABETES MELLITUS
     Dosage: UNK
     Route: 065
     Dates: start: 2014
  3. FISH OIL [Concomitant]
     Active Substance: FISH OIL
     Dosage: 1000 MG, UNKNOWN
  4. CLOPIDOGREL [Concomitant]
     Active Substance: CLOPIDOGREL BISULFATE
     Dosage: 75 MG, UNK
  5. ATORVASTATIN [Concomitant]
     Active Substance: ATORVASTATIN
     Dosage: 5 MG, UNKNOWN
  6. ATACAND PLUS [Concomitant]
     Active Substance: CANDESARTAN CILEXETIL\HYDROCHLOROTHIAZIDE
  7. OMEGA-3                            /01168901/ [Concomitant]
     Dosage: 300 MG, UNKNOWN
  8. RANITIDINE [Concomitant]
     Active Substance: RANITIDINE\RANITIDINE HYDROCHLORIDE
     Dosage: 300 MG, PRN

REACTIONS (5)
  - Limb discomfort [Unknown]
  - Hypersensitivity [Unknown]
  - Pain [Unknown]
  - Musculoskeletal chest pain [Unknown]
  - Headache [Unknown]
